FAERS Safety Report 10566464 (Version 1)
Quarter: 2014Q4

REPORT INFORMATION
  Report Type: Spontaneous
  Country: IT (occurrence: IT)
  Receive Date: 20141105
  Receipt Date: 20141105
  Transmission Date: 20150529
  Serious: Yes (Other)
  Sender: FDA-Public Use
  Company Number: PHHY2014IT140306

PATIENT
  Age: 11 Month
  Sex: Female

DRUGS (5)
  1. HYDROCORTISONE. [Suspect]
     Active Substance: HYDROCORTISONE
     Indication: ADRENAL INSUFFICIENCY NEONATAL
     Dosage: 15 MG/M2, UNK
     Route: 065
  2. PHYSIOLOGICAL SALINE SOLUTION [Concomitant]
     Active Substance: SODIUM CHLORIDE
     Indication: PRODUCT USED FOR UNKNOWN INDICATION
     Route: 065
  3. SODIUM CHLORIDE. [Concomitant]
     Active Substance: SODIUM CHLORIDE
     Indication: PRODUCT USED FOR UNKNOWN INDICATION
     Dosage: 1 G, QD
  4. FLUDROCORTISONE [Interacting]
     Active Substance: FLUDROCORTISONE
     Indication: ADRENAL INSUFFICIENCY NEONATAL
     Dosage: 15 MG/M2, UNK
     Route: 065
  5. MACROGOL 3350 [Interacting]
     Active Substance: POLYETHYLENE GLYCOL 3350
     Indication: CONSTIPATION
     Route: 065

REACTIONS (7)
  - Adrenocortical insufficiency acute [Recovered/Resolved]
  - Hypotonia [Recovered/Resolved]
  - Drug interaction [Unknown]
  - Lethargy [Recovered/Resolved]
  - Asthenia [Recovered/Resolved]
  - Blood corticotrophin increased [Recovered/Resolved]
  - Hypoglycaemia [Recovered/Resolved]
